FAERS Safety Report 4993541-X (Version None)
Quarter: 2006Q2

REPORT INFORMATION
  Report Type: 
  Country: None (occurrence: None)
  Receive Date: 20060505
  Receipt Date: 20050624
  Transmission Date: 20061013
  Serious: Yes (Other)
  Sender: FDA-Public Use
  Company Number: 2005CG01171

PATIENT
  Age: 58 Year
  Sex: Male
  Weight: 90 kg

DRUGS (4)
  1. ZOLADEX [Suspect]
     Indication: PROSTATE CANCER
     Route: 058
     Dates: start: 20041023, end: 20050101
  2. SMECTA [Concomitant]
     Route: 048
     Dates: end: 20050401
  3. MICTASOL [Concomitant]
     Route: 048
     Dates: end: 20050401
  4. ENDOTELON [Concomitant]
     Route: 048
     Dates: end: 20050401

REACTIONS (3)
  - ASTHENIA [None]
  - GAMMA-GLUTAMYLTRANSFERASE INCREASED [None]
  - TRANSAMINASES INCREASED [None]
